FAERS Safety Report 4700786-2 (Version None)
Quarter: 2005Q2

REPORT INFORMATION
  Report Type: 
  Country: None (occurrence: None)
  Receive Date: 20050624
  Receipt Date: 20050413
  Transmission Date: 20051028
  Serious: Yes (Hospitalization)
  Sender: FDA-Public Use
  Company Number: 401874

PATIENT
  Age: 54 Year
  Sex: Male

DRUGS (8)
  1. CAPECITABINE (CAPECITABINE) [Suspect]
     Indication: RECTAL CANCER
     Dosage: 1350 MG/M2 2 PER DAY ORAL
     Route: 048
  2. OXALIPLATIN [Suspect]
     Indication: RECTAL CANCER
     Dosage: 130 MG/M2 1 PER 3 WEEK INTRAVENOUS
     Route: 042
  3. TERAZOSIN HYDROCHLORIDE (TERAZOSINUM) [Concomitant]
  4. CITALOPRAM HYDROBROMIDE (CITALOPRAM) [Concomitant]
  5. ASPIRIN ENTERIC COATED (ASPIRIN) [Concomitant]
  6. OXAZEPAM [Concomitant]
  7. RANITIDINE [Concomitant]
  8. CELECOXIB [Concomitant]

REACTIONS (1)
  - ARTERIOSPASM CORONARY [None]
